FAERS Safety Report 8082033-X (Version None)
Quarter: 2012Q1

REPORT INFORMATION
  Report Type: 
  Country: None (occurrence: None)
  Receive Date: 20120130
  Receipt Date: 20120124
  Transmission Date: 20120608
  Serious: Yes (Hospitalization)
  Sender: FDA-Public Use
  Company Number: PHHY2011IT38545

PATIENT
  Sex: Male

DRUGS (10)
  1. DILTIAZEM HCL [Concomitant]
  2. NITRATES [Concomitant]
     Dosage: UNK UKN, UNK
  3. FLUOROURACIL [Suspect]
     Indication: NASOPHARYNGEAL CANCER
     Dates: start: 20110306
  4. ACETYLSALICYLIC ACID SRT [Concomitant]
  5. TAXOTERE [Suspect]
     Indication: NASOPHARYNGEAL CANCER
     Dates: start: 20110306, end: 20110327
  6. PRAVASTATIN [Concomitant]
     Dosage: UNK UKN, UNK
  7. METFFORMIN HYDROCHLORIDE [Concomitant]
     Dosage: UNK UKN, UNK
  8. CISPLATIN [Suspect]
     Indication: NASOPHARYNGEAL CANCER
     Dates: start: 20110306, end: 20110327
  9. GLYCAZIDE [Concomitant]
     Dosage: UNK UKN, UNK
  10. OMEGA 3 INTEGRATOR [Concomitant]
     Dosage: UNK UKN, UNK

REACTIONS (2)
  - HEPATITIS CHOLESTATIC [None]
  - STOMATITIS [None]
